FAERS Safety Report 5385443-4 (Version None)
Quarter: 2007Q3

REPORT INFORMATION
  Report Type: 
  Country: None (occurrence: None)
  Receive Date: 20070706
  Receipt Date: 20070706
  Transmission Date: 20080115
  Serious: No
  Sender: FDA-Public Use
  Company Number: None

PATIENT
  Age: 76 Year
  Sex: Female
  Weight: 67.586 kg

DRUGS (5)
  1. SIMVASTATIN [Suspect]
     Indication: BLOOD CHOLESTEROL INCREASED
     Dosage: 80 MG QD ORAL
     Route: 048
     Dates: start: 20070201
  2. LISINOPRIL [Concomitant]
  3. VITAMIN CAP [Concomitant]
  4. CA+ VIT D [Concomitant]
  5. FISH OIL [Concomitant]

REACTIONS (2)
  - INFLUENZA LIKE ILLNESS [None]
  - RASH [None]
